FAERS Safety Report 11871261 (Version 1)
Quarter: 2015Q4

REPORT INFORMATION
  Report Type: Spontaneous
  Country: FR (occurrence: FR)
  Receive Date: 20151228
  Receipt Date: 20151228
  Transmission Date: 20160305
  Serious: Yes (Hospitalization)
  Sender: FDA-Public Use
  Company Number: FR-SA-2015SA217886

PATIENT
  Age: 60 Year
  Sex: Female
  Weight: 117 kg

DRUGS (16)
  1. PREDNISONE. [Concomitant]
     Active Substance: PREDNISONE
     Dates: start: 20151124
  2. METHOTREXATE [Concomitant]
     Active Substance: METHOTREXATE
     Indication: RHEUMATOID ARTHRITIS
  3. ACTISKENAN [Concomitant]
     Active Substance: MORPHINE SULFATE
     Dates: start: 20151124, end: 20151206
  4. DOLIPRANE [Concomitant]
     Active Substance: ACETAMINOPHEN
     Dates: start: 20151124
  5. HEPARIN [Concomitant]
     Active Substance: HEPARIN SODIUM
     Dates: start: 20151124, end: 20151207
  6. LOVENOX [Suspect]
     Active Substance: ENOXAPARIN SODIUM
     Indication: DEEP VEIN THROMBOSIS
     Route: 065
     Dates: start: 20151117
  7. LOVENOX [Suspect]
     Active Substance: ENOXAPARIN SODIUM
     Indication: DEEP VEIN THROMBOSIS
     Route: 058
     Dates: start: 20151125, end: 20151206
  8. INEXIUM [Concomitant]
     Active Substance: ESOMEPRAZOLE
     Dates: start: 20151124
  9. DILTIAZEM [Concomitant]
     Active Substance: DILTIAZEM
     Dates: start: 20151124
  10. SKENAN [Concomitant]
     Active Substance: MORPHINE SULFATE
     Dates: start: 20151124, end: 20151206
  11. ACUPAN [Concomitant]
     Active Substance: NEFOPAM HYDROCHLORIDE
     Dates: start: 20151124
  12. COUMADINE [Concomitant]
     Active Substance: WARFARIN SODIUM
     Dates: start: 20151121, end: 20151123
  13. LYRICA [Concomitant]
     Active Substance: PREGABALIN
     Dates: start: 20151124
  14. MONO-TILDIEM [Concomitant]
     Active Substance: DILTIAZEM HYDROCHLORIDE
     Indication: HYPERTENSION
  15. HEPARIN [Concomitant]
     Active Substance: HEPARIN SODIUM
     Dates: start: 20151119, end: 20151121
  16. HEPARIN [Concomitant]
     Active Substance: HEPARIN SODIUM
     Dates: start: 20151125, end: 20151125

REACTIONS (3)
  - Acute kidney injury [Recovering/Resolving]
  - Haemorrhagic anaemia [Recovering/Resolving]
  - Post procedural haematoma [Recovering/Resolving]

NARRATIVE: CASE EVENT DATE: 20151206
